FAERS Safety Report 13666627 (Version 1)
Quarter: 2017Q2

REPORT INFORMATION
  Report Type: Spontaneous
  Country: US (occurrence: US)
  Receive Date: 20170619
  Receipt Date: 20170619
  Transmission Date: 20170830
  Serious: No
  Sender: FDA-Public Use
  Company Number: US-ROCHE-1454413

PATIENT
  Age: 67 Year
  Sex: Male

DRUGS (1)
  1. XELODA [Suspect]
     Active Substance: CAPECITABINE
     Indication: OESOPHAGEAL CARCINOMA
     Dosage: 2 IN AM, 2 IN PM, 2 WKS ON / 1 WK OFF
     Route: 048

REACTIONS (3)
  - Unevaluable event [Unknown]
  - Nausea [Unknown]
  - Tenderness [Unknown]
